APPROVED DRUG PRODUCT: ACCUPRIL
Active Ingredient: QUINAPRIL HYDROCHLORIDE
Strength: EQ 40MG BASE **Federal Register determination that product was not discontinued or withdrawn for safety or effectiveness reasons**
Dosage Form/Route: TABLET;ORAL
Application: N019885 | Product #004
Applicant: PFIZER PHARMACEUTICALS LTD
Approved: Nov 19, 1991 | RLD: Yes | RS: No | Type: DISCN